FAERS Safety Report 12569291 (Version 3)
Quarter: 2016Q3

REPORT INFORMATION
  Report Type: Report from Study
  Country: US (occurrence: US)
  Receive Date: 20160719
  Receipt Date: 20160808
  Transmission Date: 20161109
  Serious: Yes (Hospitalization)
  Sender: FDA-Public Use
  Company Number: US-EISAI MEDICAL RESEARCH-EC-2016-018483

PATIENT
  Age: 63 Year
  Sex: Male

DRUGS (3)
  1. LENVIMA [Suspect]
     Active Substance: LENVATINIB
     Route: 048
     Dates: start: 20160218, end: 20160523
  2. LENVIMA [Suspect]
     Active Substance: LENVATINIB
     Route: 048
     Dates: start: 20160524, end: 201607
  3. LENVIMA [Suspect]
     Active Substance: LENVATINIB
     Indication: THYROID CANCER
     Route: 048
     Dates: start: 20150506, end: 20151216

REACTIONS (4)
  - Dehydration [Recovered/Resolved]
  - Swelling [Unknown]
  - Acute kidney injury [Recovered/Resolved]
  - Pain management [Recovered/Resolved]

NARRATIVE: CASE EVENT DATE: 201607
